FAERS Safety Report 8622696-0 (Version None)
Quarter: 2012Q3

REPORT INFORMATION
  Report Type: 
  Country: None (occurrence: None)
  Receive Date: 20120827
  Receipt Date: 20120816
  Transmission Date: 20120928
  Serious: Yes (Hospitalization)
  Sender: FDA-Public Use
  Company Number: US-BAYER-2012-047536

PATIENT
  Age: 37 Year
  Sex: Female
  Weight: 72.562 kg

DRUGS (3)
  1. YASMIN [Suspect]
     Dosage: UNK, 1 DAILY
     Dates: start: 20060201
  2. YAZ [Suspect]
     Dosage: UNK
     Dates: start: 20060201
  3. DROSPIRENONE AND ETHINYL ESTRADIOL [Suspect]
     Dosage: UNK
     Dates: start: 20060201

REACTIONS (6)
  - ANXIETY [None]
  - ANHEDONIA [None]
  - DEEP VEIN THROMBOSIS [None]
  - PAIN [None]
  - INJURY [None]
  - FEAR [None]
